FAERS Safety Report 10953766 (Version 1)
Quarter: 2015Q1

REPORT INFORMATION
  Report Type: Spontaneous
  Country: US (occurrence: None)
  Receive Date: 20150226
  Receipt Date: 20150226
  Transmission Date: 20150721
  Serious: Yes (Other)
  Sender: FDA-Public Use
  Company Number: TPA2012A01730

PATIENT
  Age: 70 Year
  Sex: Male

DRUGS (7)
  1. ACTOS [Suspect]
     Active Substance: PIOGLITAZONE HYDROCHLORIDE
     Indication: TYPE 2 DIABETES MELLITUS
     Dosage: 30 UNK.
     Dates: start: 200502, end: 200802
  2. METFORMIN [Concomitant]
     Active Substance: METFORMIN HYDROCHLORIDE
  3. HUMALOG [Concomitant]
     Active Substance: INSULIN LISPRO
  4. LANTUS (INSULIN GLARGINE) ? [Concomitant]
  5. GLUCOTROL [Concomitant]
     Active Substance: GLIPIZIDE
  6. AVANDIA (ROSIGLITAZONE MALEATE) [Concomitant]
  7. GLUCOPHAGE [Concomitant]
     Active Substance: METFORMIN HYDROCHLORIDE

REACTIONS (2)
  - Bladder cancer [None]
  - Cystitis [None]

NARRATIVE: CASE EVENT DATE: 201004
